FAERS Safety Report 15432664 (Version 1)
Quarter: 2018Q4

REPORT INFORMATION
  Report Type: Spontaneous
  Country: GB (occurrence: GB)
  Receive Date: 20180927
  Receipt Date: 20180927
  Transmission Date: 20190204
  Serious: Yes (Other)
  Sender: FDA-Public Use
  Company Number: GB-TEVA-05-06-0968

PATIENT
  Sex: Male

DRUGS (1)
  1. BACLOFEN TABLETS USP, 10MG [Suspect]
     Active Substance: BACLOFEN
     Indication: PRODUCT USED FOR UNKNOWN INDICATION
     Dosage: 30 MILLIGRAM DAILY; 10MG TDS

REACTIONS (3)
  - Renal impairment [Unknown]
  - Confusional state [Unknown]
  - Sedation [Unknown]
